FAERS Safety Report 21801991 (Version 1)
Quarter: 2022Q4

REPORT INFORMATION
  Report Type: Report from Study
  Country: US (occurrence: US)
  Receive Date: 20221230
  Receipt Date: 20221230
  Transmission Date: 20230113
  Serious: No
  Sender: FDA-Public Use
  Company Number: US-ACORDA-ACO_172493_2022

PATIENT
  Sex: Female

DRUGS (2)
  1. INBRIJA [Suspect]
     Active Substance: LEVODOPA
     Indication: Parkinson^s disease
     Dosage: 2 DOSAGE FORM (2 CAPSULES), PRN (UP TO 5 TIMES A DAY; DO NOT SWALLOW CAPSULES)
     Dates: start: 20220415
  2. GOCOVRI [Concomitant]
     Active Substance: AMANTADINE
     Indication: Product used for unknown indication
     Dosage: 68.5 MILLIGRAM
     Route: 065

REACTIONS (1)
  - Adverse drug reaction [Not Recovered/Not Resolved]
